FAERS Safety Report 11388283 (Version 1)
Quarter: 2015Q3

REPORT INFORMATION
  Report Type: Spontaneous
  Country: IT (occurrence: IT)
  Receive Date: 20150817
  Receipt Date: 20150817
  Transmission Date: 20151125
  Serious: Yes (Hospitalization)
  Sender: FDA-Public Use
  Company Number: IT-PERRIGO-15IT008352

PATIENT
  Age: 2 Year
  Sex: Male

DRUGS (3)
  1. IBUPROFEN 20 MG/ML CHILD BERRY 897 [Suspect]
     Active Substance: IBUPROFEN
     Indication: VOMITING
     Dosage: UNK
     Route: 048
  2. IBUPROFEN 20 MG/ML CHILD BERRY 897 [Suspect]
     Active Substance: IBUPROFEN
     Indication: DIARRHOEA
  3. IBUPROFEN 20 MG/ML CHILD BERRY 897 [Suspect]
     Active Substance: IBUPROFEN
     Indication: PYREXIA
     Dosage: 10 MG/KG; 2 DOSES
     Route: 048

REACTIONS (3)
  - Melaena [Recovered/Resolved]
  - Haematemesis [Recovered/Resolved]
  - Erosive oesophagitis [Recovered/Resolved]
